FAERS Safety Report 17843475 (Version 1)
Quarter: 2020Q2

REPORT INFORMATION
  Report Type: Report from Study
  Country: CO (occurrence: CO)
  Receive Date: 20200530
  Receipt Date: 20200530
  Transmission Date: 20200714
  Serious: Yes (Hospitalization)
  Sender: FDA-Public Use
  Company Number: NVSC2019CO091243

PATIENT
  Sex: Female

DRUGS (1)
  1. JADENU [Suspect]
     Active Substance: DEFERASIROX
     Indication: SICKLE CELL ANAEMIA
     Dosage: 360 MG, QD (4 YEARS AGO)
     Route: 065

REACTIONS (5)
  - Pyrexia [Unknown]
  - Vomiting [Unknown]
  - Appendicitis [Unknown]
  - Nausea [Unknown]
  - Abdominal pain [Unknown]
